FAERS Safety Report 8546103-1 (Version None)
Quarter: 2012Q3

REPORT INFORMATION
  Report Type: 
  Country: None (occurrence: None)
  Receive Date: 20120727
  Receipt Date: 20111207
  Transmission Date: 20120928
  Serious: No
  Sender: FDA-Public Use
  Company Number: US-ASTRAZENECA-2011SE74548

PATIENT
  Age: 39 Year
  Weight: 68 kg

DRUGS (4)
  1. SEROQUEL XR [Suspect]
     Indication: SLEEP DISORDER
     Route: 048
  2. SERTRALINE H [Concomitant]
     Indication: DEPRESSION
  3. GABAPENTIN [Concomitant]
     Indication: NEURALGIA
  4. LOMACEPAM [Concomitant]

REACTIONS (3)
  - INSOMNIA [None]
  - HEADACHE [None]
  - DRUG DOSE OMISSION [None]
